FAERS Safety Report 13317801 (Version 1)
Quarter: 2017Q1

REPORT INFORMATION
  Report Type: Spontaneous
  Country: US (occurrence: US)
  Receive Date: 20170309
  Receipt Date: 20170309
  Transmission Date: 20170428
  Serious: Yes (Disabling, Other)
  Sender: FDA-Public Use
  Company Number: None

PATIENT
  Age: 55 Year
  Sex: Female

DRUGS (28)
  1. ALPRAZOLAM. [Concomitant]
     Active Substance: ALPRAZOLAM
  2. IRBESARTAN. [Concomitant]
     Active Substance: IRBESARTAN
  3. OMEGA-3-ACID ETHYL ESTERS. [Concomitant]
     Active Substance: OMEGA-3-ACID ETHYL ESTERS
  4. MAGNESIUM OXIDE. [Concomitant]
     Active Substance: MAGNESIUM OXIDE
  5. MOVEFREE [Concomitant]
  6. SYMBICORT [Concomitant]
     Active Substance: BUDESONIDE\FORMOTEROL FUMARATE DIHYDRATE
  7. VITAMIN D (ERGOCALCIFEROL) [Concomitant]
     Active Substance: ERGOCALCIFEROL
  8. VOLTAREN [Concomitant]
     Active Substance: DICLOFENAC SODIUM
  9. ZETIA [Concomitant]
     Active Substance: EZETIMIBE
  10. METAMUCIL [Concomitant]
     Active Substance: PLANTAGO SEED
  11. SODIUM BICARBONATE. [Concomitant]
     Active Substance: SODIUM BICARBONATE
  12. MYCOPHENOLATE MOFETIL. [Concomitant]
     Active Substance: MYCOPHENOLATE MOFETIL
  13. CYCLOSPORINE. [Concomitant]
     Active Substance: CYCLOSPORINE
  14. NEUROTNIN [Concomitant]
  15. PLAQUENIL [Concomitant]
     Active Substance: HYDROXYCHLOROQUINE SULFATE
  16. PROAIR RESPICLICK [Concomitant]
     Active Substance: ALBUTEROL SULFATE
  17. AREDS 2 [Concomitant]
     Active Substance: MINERALS\VITAMINS
  18. PEPCID [Concomitant]
     Active Substance: FAMOTIDINE
  19. PRAVASTATIN SODIUM. [Concomitant]
     Active Substance: PRAVASTATIN SODIUM
  20. PROBIOTIC [Concomitant]
     Active Substance: PROBIOTICS NOS
  21. METFORMIN HYDROCHLORIDE. [Concomitant]
     Active Substance: METFORMIN HYDROCHLORIDE
  22. ULORIC [Concomitant]
     Active Substance: FEBUXOSTAT
  23. NORVASC [Concomitant]
     Active Substance: AMLODIPINE BESYLATE
  24. MACRODANTIN [Concomitant]
     Active Substance: NITROFURANTOIN
  25. SALSALATE TABS 750 DF [Suspect]
     Active Substance: SALSALATE
     Indication: ARTHRALGIA
     Route: 048
     Dates: start: 20160911, end: 20170226
  26. HYDROXYCHLOROQUINE SULFATE. [Concomitant]
     Active Substance: HYDROXYCHLOROQUINE SULFATE
  27. PREDNISONE. [Concomitant]
     Active Substance: PREDNISONE
  28. TRAMADOL HCL ER [Concomitant]

REACTIONS (20)
  - Angina pectoris [None]
  - Renal pain [None]
  - Diarrhoea [None]
  - Feeling abnormal [None]
  - Chest pain [None]
  - Gastrooesophageal reflux disease [None]
  - Abdominal discomfort [None]
  - Dizziness [None]
  - Vision blurred [None]
  - Dyspnoea [None]
  - Blood pressure increased [None]
  - Renal transplant [None]
  - Nausea [None]
  - Vertigo [None]
  - Asthenia [None]
  - Tinnitus [None]
  - Fatigue [None]
  - Blood creatinine increased [None]
  - Impaired work ability [None]
  - Vomiting [None]

NARRATIVE: CASE EVENT DATE: 20161001
